FAERS Safety Report 15237364 (Version 1)
Quarter: 2018Q3

REPORT INFORMATION
  Report Type: Spontaneous
  Country: GB (occurrence: GB)
  Receive Date: 20180803
  Receipt Date: 20180803
  Transmission Date: 20181010
  Serious: Yes (Other)
  Sender: FDA-Public Use
  Company Number: PHHY2018GB060317

PATIENT
  Age: 37 Year
  Sex: Female
  Weight: 91 kg

DRUGS (1)
  1. CODEINE PHOSPHATE [Suspect]
     Active Substance: CODEINE PHOSPHATE
     Indication: PROCEDURAL PAIN
     Dosage: 30 MG, UNK
     Route: 048

REACTIONS (1)
  - Constipation [Recovering/Resolving]
